FAERS Safety Report 6312007-8 (Version None)
Quarter: 2009Q3

REPORT INFORMATION
  Report Type: 
  Country: None (occurrence: None)
  Receive Date: 20090817
  Receipt Date: 20090805
  Transmission Date: 20100115
  Serious: Yes (Other)
  Sender: FDA-Public Use
  Company Number: PHHY2009JP32733

PATIENT
  Age: 73 Year
  Sex: Female

DRUGS (5)
  1. TEGRETOL [Suspect]
     Indication: TRIGEMINAL NEURALGIA
     Dosage: 400 MG
     Route: 048
  2. TEGRETOL [Suspect]
     Dosage: 600 MG
     Route: 048
  3. GABAPENTIN [Suspect]
     Indication: TRIGEMINAL NEURALGIA
     Dosage: 900 MG
  4. LIORESAL [Concomitant]
     Indication: TRIGEMINAL NEURALGIA
     Dosage: 15 MG
  5. LIORESAL [Concomitant]
     Dosage: 30 MG

REACTIONS (11)
  - DIZZINESS [None]
  - EYE PAIN [None]
  - GAIT DISTURBANCE [None]
  - HEADACHE [None]
  - HEPATIC FUNCTION ABNORMAL [None]
  - PERIPHERAL NERVE DECOMPRESSION [None]
  - RASH GENERALISED [None]
  - SLEEP DISORDER [None]
  - SOMNOLENCE [None]
  - SURGERY [None]
  - TRIGEMINAL NEURALGIA [None]
